FAERS Safety Report 6679598-9 (Version None)
Quarter: 2010Q2

REPORT INFORMATION
  Report Type: 
  Country: None (occurrence: None)
  Receive Date: 20100408
  Receipt Date: 20090820
  Transmission Date: 20101027
  Serious: No
  Sender: FDA-Public Use
  Company Number: 2009-00451

PATIENT
  Age: 50 Year
  Sex: Female
  Weight: 63.5036 kg

DRUGS (3)
  1. ZICAM COLD REMEDY GEL SWABS [Suspect]
     Dosage: TID - 2-3 DOSES
     Dates: start: 20090501, end: 20090501
  2. PROZAC [Concomitant]
  3. BONIVA [Concomitant]

REACTIONS (1)
  - ANOSMIA [None]
